FAERS Safety Report 16313213 (Version 2)
Quarter: 2019Q3

REPORT INFORMATION
  Report Type: Spontaneous
  Country: CA (occurrence: CA)
  Receive Date: 20190515
  Receipt Date: 20190923
  Transmission Date: 20191004
  Serious: Yes (Life-Threatening, Hospitalization, Other)
  Sender: FDA-Public Use
  Company Number: CA-AUROBINDO-AUR-APL-2019-026103

PATIENT
  Age: 29 Year
  Sex: Male

DRUGS (3)
  1. CYPROTERONE [Suspect]
     Active Substance: CYPROTERONE
     Indication: TRANSGENDER HORMONAL THERAPY
     Dosage: 25 MILLIGRAM, ONCE A DAY
     Route: 065
  2. FINASTERIDE TABLETS [Suspect]
     Active Substance: FINASTERIDE
     Indication: TRANSGENDER HORMONAL THERAPY
     Dosage: 1 MILLIGRAM, ONCE A DAY
     Route: 065
  3. ESTRADIOL. [Suspect]
     Active Substance: ESTRADIOL
     Indication: TRANSGENDER HORMONAL THERAPY
     Dosage: 4 MILLIGRAM, TWO TIMES A DAY, 2 AM; 2 PM
     Route: 060

REACTIONS (3)
  - Arrhythmia [Unknown]
  - Ventricular extrasystoles [Unknown]
  - Transgender hormonal therapy [Unknown]
